FAERS Safety Report 5090921-1 (Version None)
Quarter: 2006Q3

REPORT INFORMATION
  Report Type: 
  Country: None (occurrence: None)
  Receive Date: 20060828
  Receipt Date: 20060818
  Transmission Date: 20061208
  Serious: Yes (Hospitalization, Other)
  Sender: FDA-Public Use
  Company Number: FR-ABBOTT-06P-056-0341080-00

PATIENT
  Age: 69 Year
  Sex: Female

DRUGS (7)
  1. DEPAKENE [Suspect]
     Indication: DRUG USE FOR UNKNOWN INDICATION
     Route: 048
     Dates: end: 20060717
  2. TEICOPLANIN [Suspect]
     Indication: SEPTIC SHOCK
     Route: 042
     Dates: start: 20060707, end: 20060716
  3. TEICOPLANIN [Suspect]
     Indication: STAPHYLOCOCCAL SEPSIS
  4. BACTRIM [Suspect]
     Indication: SEPTIC SHOCK
     Route: 042
     Dates: start: 20060707, end: 20060716
  5. BACTRIM [Suspect]
     Indication: STAPHYLOCOCCAL SEPSIS
  6. LEVOTHYROXINE SODIUM [Concomitant]
     Indication: DRUG USE FOR UNKNOWN INDICATION
     Route: 048
  7. PREDNISOLONE SODIUM PHOSPHATE [Concomitant]
     Indication: DRUG USE FOR UNKNOWN INDICATION
     Route: 048
     Dates: start: 20060707

REACTIONS (5)
  - ANAEMIA [None]
  - GENERAL PHYSICAL HEALTH DETERIORATION [None]
  - SEPTIC SHOCK [None]
  - STAPHYLOCOCCAL SEPSIS [None]
  - THROMBOCYTOPENIA [None]
